FAERS Safety Report 22217488 (Version 5)
Quarter: 2025Q1

REPORT INFORMATION
  Report Type: Report from Study
  Country: CA (occurrence: CA)
  Receive Date: 20230417
  Receipt Date: 20250127
  Transmission Date: 20250408
  Serious: Yes (Hospitalization, Other)
  Sender: TAKEDA
  Company Number: CA-TAKEDA-2022TUS071774

PATIENT
  Sex: Female

DRUGS (19)
  1. VEDOLIZUMAB [Suspect]
     Active Substance: VEDOLIZUMAB
     Indication: Colitis ulcerative
  2. VEDOLIZUMAB [Suspect]
     Active Substance: VEDOLIZUMAB
  3. VEDOLIZUMAB [Suspect]
     Active Substance: VEDOLIZUMAB
  4. VEDOLIZUMAB [Suspect]
     Active Substance: VEDOLIZUMAB
  5. VEDOLIZUMAB [Suspect]
     Active Substance: VEDOLIZUMAB
  6. VEDOLIZUMAB [Suspect]
     Active Substance: VEDOLIZUMAB
  7. FERROUS FUMARATE [Concomitant]
     Active Substance: FERROUS FUMARATE
  8. PANTOPRAZOLE [Concomitant]
     Active Substance: PANTOPRAZOLE
  9. LITHIUM CARBONATE [Concomitant]
     Active Substance: LITHIUM CARBONATE
  10. Salofalk [Concomitant]
  11. Salofalk [Concomitant]
  12. HALOPERIDOL [Concomitant]
     Active Substance: HALOPERIDOL
  13. VITAMIN D [Concomitant]
     Active Substance: VITAMIN D NOS
  14. XELJANZ [Concomitant]
     Active Substance: TOFACITINIB CITRATE
     Dosage: 10 MILLIGRAM, BID
     Dates: start: 2020, end: 2022
  15. XELJANZ [Concomitant]
     Active Substance: TOFACITINIB CITRATE
  16. DIPHENHYDRAMINE [Concomitant]
     Active Substance: DIPHENHYDRAMINE
     Indication: Premedication
  17. HYDROCORTISONE [Concomitant]
     Active Substance: HYDROCORTISONE
  18. ROSUVASTATIN [Concomitant]
     Active Substance: ROSUVASTATIN
     Dosage: 20 MILLIGRAM, QD
  19. ASPIRIN [Concomitant]
     Active Substance: ASPIRIN
     Dosage: 81 MILLIGRAM, QD

REACTIONS (5)
  - Rectal haemorrhage [Unknown]
  - Haemorrhage intracranial [Unknown]
  - Acute myocardial infarction [Unknown]
  - Cardiovascular disorder [Unknown]
  - Diarrhoea [Unknown]
